FAERS Safety Report 7284551-0 (Version None)
Quarter: 2011Q1

REPORT INFORMATION
  Report Type: 
  Country: None (occurrence: None)
  Receive Date: 20110209
  Receipt Date: 20101202
  Transmission Date: 20110831
  Serious: Yes (Hospitalization)
  Sender: FDA-Public Use
  Company Number: DE-BAYER-201047063GPV

PATIENT
  Sex: Female
  Weight: 90 kg

DRUGS (2)
  1. DRUGS FOR OBSTRUCTIVE AIRWAY DISEASES [Concomitant]
  2. AVELOX [Suspect]
     Indication: CHRONIC OBSTRUCTIVE PULMONARY DISEASE
     Route: 048

REACTIONS (4)
  - DYSPNOEA [None]
  - RASH [None]
  - ANAPHYLACTIC REACTION [None]
  - STRIDOR [None]
